FAERS Safety Report 4634551-1 (Version None)
Quarter: 2005Q2

REPORT INFORMATION
  Report Type: 
  Country: None (occurrence: None)
  Receive Date: 20050411
  Receipt Date: 20050330
  Transmission Date: 20051028
  Serious: Yes (Life-Threatening)
  Sender: FDA-Public Use
  Company Number: JP-2005-004480

PATIENT
  Age: 79 Year
  Sex: Female

DRUGS (1)
  1. PROSCOPE           (IOPROMIDE) [Suspect]
     Indication: COMPUTERISED TOMOGRAM ABDOMEN
     Dosage: 100 ML 1 DOSE, INTRAVENOUS
     Route: 042
     Dates: start: 20050325, end: 20050325

REACTIONS (4)
  - BLOOD PRESSURE SYSTOLIC DECREASED [None]
  - LOSS OF CONSCIOUSNESS [None]
  - SHOCK [None]
  - UNRESPONSIVE TO VERBAL STIMULI [None]
